FAERS Safety Report 22400914 (Version 1)
Quarter: 2023Q2

REPORT INFORMATION
  Report Type: Spontaneous
  Country: US (occurrence: US)
  Receive Date: 20230602
  Receipt Date: 20230602
  Transmission Date: 20230721
  Serious: Yes (Hospitalization)
  Sender: FDA-Public Use
  Company Number: US-MLMSERVICE-20230519-4289263-1

PATIENT
  Age: 40 Year
  Sex: Female

DRUGS (1)
  1. METFORMIN [Suspect]
     Active Substance: METFORMIN HYDROCHLORIDE
     Indication: Type 2 diabetes mellitus
     Route: 065

REACTIONS (5)
  - Altered state of consciousness [Unknown]
  - Unresponsive to stimuli [Unknown]
  - Shock [Unknown]
  - Hypothermia [Unknown]
  - Lactic acidosis [Unknown]
